FAERS Safety Report 17728447 (Version 1)
Quarter: 2020Q2

REPORT INFORMATION
  Report Type: Spontaneous
  Country: CA (occurrence: CA)
  Receive Date: 20200430
  Receipt Date: 20200430
  Transmission Date: 20200714
  Serious: Yes (Life-Threatening, Hospitalization, Other)
  Sender: FDA-Public Use
  Company Number: CA-PFIZER INC-2020172174

PATIENT
  Age: 69 Year
  Sex: Male
  Weight: 105 kg

DRUGS (9)
  1. CANDESARTAN. [Concomitant]
     Active Substance: CANDESARTAN
  2. ABIRATERONE ACETATE. [Interacting]
     Active Substance: ABIRATERONE ACETATE
  3. VENLAFAXINE HCL [Suspect]
     Active Substance: VENLAFAXINE HYDROCHLORIDE
     Indication: HOT FLUSH
     Dosage: 37.5 MG, 1X/DAY
     Route: 048
  4. DILTIAZEM. [Concomitant]
     Active Substance: DILTIAZEM
  5. PREDNISONE. [Concomitant]
     Active Substance: PREDNISONE
  6. NAPROXEN. [Concomitant]
     Active Substance: NAPROXEN
  7. TRAMADOL + ACETAMINOFEN [Concomitant]
     Active Substance: ACETAMINOPHEN\TRAMADOL
  8. LEUPROLIDE [LEUPRORELIN ACETATE] [Concomitant]
     Active Substance: LEUPROLIDE ACETATE
  9. KETOROLAC [Concomitant]
     Active Substance: KETOROLAC TROMETHAMINE

REACTIONS (2)
  - Thrombocytopenia [Recovering/Resolving]
  - Drug interaction [Recovering/Resolving]
